FAERS Safety Report 8411008-3 (Version None)
Quarter: 2012Q2

REPORT INFORMATION
  Report Type: 
  Country: None (occurrence: None)
  Receive Date: 20120605
  Receipt Date: 20120501
  Transmission Date: 20120825
  Serious: No
  Sender: FDA-Public Use
  Company Number: US-AMGEN-USASP2012027377

PATIENT
  Sex: Female

DRUGS (19)
  1. JANUMET [Concomitant]
     Dosage: UNK
  2. PEPCID [Concomitant]
     Dosage: UNK
  3. PRAVASTATIN [Concomitant]
     Dosage: UNK
  4. VITAMIN E                          /00110501/ [Concomitant]
     Dosage: UNK
  5. VITAMIN D [Concomitant]
     Dosage: UNK
  6. LISINOPRIL [Concomitant]
     Dosage: UNK
  7. CYMBALTA [Concomitant]
     Dosage: UNK
  8. LYRICA [Concomitant]
     Dosage: UNK
  9. FOLIC ACID [Concomitant]
     Dosage: UNK
  10. ISOSORBIDE DINITRATE [Concomitant]
     Dosage: UNK
  11. CHONDROITIN [Concomitant]
     Dosage: UNK
  12. NITROSTAT [Concomitant]
     Dosage: UNK
  13. GLUCOSAMINE [Concomitant]
     Dosage: UNK
  14. HYDROCODONE BITARTRATE/HOMATROPINE METHYBROMIDE [Concomitant]
     Dosage: UNK
  15. CYCLOBENZAPRINE [Concomitant]
     Dosage: UNK
  16. ENBREL [Suspect]
     Indication: RHEUMATOID ARTHRITIS
     Dosage: 50 MG, QWK
  17. ASPIRIN [Concomitant]
     Dosage: 1 MG, UNK
  18. AMBIEN [Concomitant]
     Dosage: UNK
  19. METHOTREXATE [Concomitant]
     Dosage: UNK

REACTIONS (1)
  - CYSTITIS NONINFECTIVE [None]
